FAERS Safety Report 6903879-4 (Version None)
Quarter: 2010Q3

REPORT INFORMATION
  Report Type: 
  Country: None (occurrence: None)
  Receive Date: 20100804
  Receipt Date: 20090124
  Transmission Date: 20110219
  Serious: No
  Sender: FDA-Public Use
  Company Number: US-PFIZER INC-2008154213

PATIENT
  Age: 49 Year
  Sex: Female
  Weight: 59.41 kg

DRUGS (12)
  1. LYRICA [Suspect]
     Indication: FIBROMYALGIA
     Dosage: 50 MG, 2X/DAY
     Dates: start: 20081101, end: 20081201
  2. TOPAMAX [Concomitant]
  3. CLONAZEPAM [Concomitant]
  4. SYNTHROID [Concomitant]
  5. WELLBUTRIN [Concomitant]
  6. CYMBALTA [Concomitant]
  7. MELOXICAM [Concomitant]
  8. PREMPRO [Concomitant]
  9. MAXALT [Concomitant]
  10. FIORINAL [Concomitant]
  11. SEROQUEL [Concomitant]
  12. ADVAIR DISKUS 100/50 [Concomitant]

REACTIONS (1)
  - RASH [None]
